FAERS Safety Report 22093082 (Version 1)
Quarter: 2023Q1

REPORT INFORMATION
  Report Type: Spontaneous
  Country: CO (occurrence: CO)
  Receive Date: 20230314
  Receipt Date: 20230314
  Transmission Date: 20230417
  Serious: Yes (Death, Hospitalization, Other)
  Sender: FDA-Public Use
  Company Number: CO-MYLANLABS-2023M1024953

PATIENT
  Age: 1 Year
  Sex: Female
  Weight: 7 kg

DRUGS (8)
  1. CYSTAGON [Suspect]
     Active Substance: CYSTEAMINE BITARTRATE
     Indication: Cystinosis
     Dosage: UNK
     Route: 065
     Dates: start: 202212
  2. SODIUM BICARBONATE [Concomitant]
     Active Substance: SODIUM BICARBONATE
     Indication: Product used for unknown indication
     Dosage: 15 MILLILITER, Q6H VIA VO (UNSPECIFIED)
     Route: 065
  3. SODIUM CHLORIDE [Concomitant]
     Active Substance: SODIUM CHLORIDE
     Indication: Product used for unknown indication
     Dosage: 3 MILLILITER, Q8H VIA VO (UNSPECIFIED)
     Route: 065
  4. Kidcal [Concomitant]
     Indication: Product used for unknown indication
     Dosage: 2.5 MILLILITER, Q8H VIA VO (UNSPECIFIED)
     Route: 065
  5. MAGNESIUM OXIDE [Concomitant]
     Active Substance: MAGNESIUM OXIDE
     Indication: Product used for unknown indication
     Dosage: 400 MILLIGRAM, Q6H VIA VO (UNSPECIFIED)
     Route: 065
  6. NUCTIS D [Concomitant]
     Indication: Product used for unknown indication
     Dosage: 3 GTT DROPS, QD VIA VO (UNSPECIFIED)
     Route: 065
  7. UNSPECIFIED INGREDIENT [Concomitant]
     Active Substance: UNSPECIFIED INGREDIENT
     Indication: Product used for unknown indication
     Dosage: 4.5 MILLILITER, Q8H VIA VO (UNSPECIFIED)
     Route: 065
  8. POTASSIUM [Concomitant]
     Active Substance: POTASSIUM
     Indication: Product used for unknown indication
     Dosage: 3 MILLILITER, Q8H VIA VO (UNSPECIFIED)
     Route: 065

REACTIONS (1)
  - Renal failure [Fatal]

NARRATIVE: CASE EVENT DATE: 20230201
